FAERS Safety Report 13996300 (Version 2)
Quarter: 2017Q4

REPORT INFORMATION
  Report Type: Spontaneous
  Country: US (occurrence: US)
  Receive Date: 20170921
  Receipt Date: 20171030
  Transmission Date: 20180321
  Serious: Yes (Hospitalization, Other)
  Sender: FDA-Public Use
  Company Number: US-PFIZER INC-2014021785

PATIENT
  Age: 60 Year
  Sex: Female
  Weight: 58.5 kg

DRUGS (9)
  1. FUROSEMIDE. [Concomitant]
     Active Substance: FUROSEMIDE
     Indication: OEDEMA
     Dosage: 40 MG, 1X/DAY (STARTED TAKING 20 YEARS AGO)
  2. METHOTREXATE. [Concomitant]
     Active Substance: METHOTREXATE
     Indication: SYSTEMIC LUPUS ERYTHEMATOSUS
     Dosage: 25 MG, WEEKLY(SHE TAKES 5 TABS IN THE MORNING AND 5 TABS IN THE EVENING ONCE A WEEK)
     Dates: start: 2016
  3. VFEND [Suspect]
     Active Substance: VORICONAZOLE
     Indication: OESOPHAGEAL CANDIDIASIS
     Dosage: 200 MG, 2X/DAY
     Dates: start: 20120827
  4. PREDNISONE. [Concomitant]
     Active Substance: PREDNISONE
     Indication: SYSTEMIC LUPUS ERYTHEMATOSUS
     Dosage: UNK UNK, 1X/DAY(20-40MG A DAY)
  5. FLUOXETINE [Concomitant]
     Active Substance: FLUOXETINE HYDROCHLORIDE
     Indication: SYSTEMIC LUPUS ERYTHEMATOSUS
     Dosage: 40 MG, DAILY (HAS BEEN TAKING FOR YEARS)
  6. WARFARIN [Concomitant]
     Active Substance: WARFARIN
     Indication: SYSTEMIC LUPUS ERYTHEMATOSUS
     Dosage: 1 MG, 3X/DAY(STARTED TAKING ABOUT 10 YEARS AGO)
  7. VFEND [Suspect]
     Active Substance: VORICONAZOLE
     Indication: CANDIDA INFECTION
     Dosage: 200 MG, 3X/DAY
     Route: 048
  8. OXYCODONE [Concomitant]
     Active Substance: OXYCODONE
     Indication: PAIN
     Dosage: 3 DF, 1X/DAY
     Dates: start: 2016
  9. METHOTREXATE. [Concomitant]
     Active Substance: METHOTREXATE
     Indication: CUTANEOUS LUPUS ERYTHEMATOSUS

REACTIONS (3)
  - Enterococcal infection [Unknown]
  - Pneumonia [Not Recovered/Not Resolved]
  - Off label use [Unknown]

NARRATIVE: CASE EVENT DATE: 20170315
